FAERS Safety Report 9063531 (Version 1)
Quarter: 2013Q1

REPORT INFORMATION
  Report Type: Spontaneous
  Country: US (occurrence: US)
  Receive Date: 20130131
  Receipt Date: 20130131
  Transmission Date: 20140127
  Serious: No
  Sender: FDA-Public Use
  Company Number: US-ABBOTT-12P-163-1007596-00

PATIENT
  Sex: Female
  Weight: 96.25 kg

DRUGS (12)
  1. HUMIRA [Suspect]
     Indication: RHEUMATOID ARTHRITIS
     Dates: start: 200404, end: 2010
  2. HUMIRA [Suspect]
     Dates: start: 2010, end: 201209
  3. HUMIRA [Suspect]
     Dates: start: 201209, end: 201210
  4. AZATHIOPRINE [Suspect]
     Indication: RHEUMATOID ARTHRITIS
     Dosage: 100 MG IN AM, 50 MG IN PM
  5. VICODIN ES [Suspect]
     Indication: PAIN
     Dosage: 7.5/750
  6. ORENCIA [Concomitant]
     Indication: RHEUMATOID ARTHRITIS
     Dates: start: 201211
  7. NABUMETONE [Concomitant]
     Indication: RHEUMATOID ARTHRITIS
  8. BYSTOLIC [Concomitant]
     Indication: HYPERTENSION
  9. RANITIDINE [Concomitant]
     Indication: ABDOMINAL DISCOMFORT
  10. ASPIRIN [Concomitant]
     Indication: CARDIOVASCULAR EVENT PROPHYLAXIS
  11. DIPHENHYDRAMINE [Concomitant]
     Indication: PRURITUS
     Dosage: AT HS
  12. A-Z MULTIVITAMIN [Concomitant]
     Indication: VITAMIN SUPPLEMENTATION
     Dosage: NOT CONSISTENTLY

REACTIONS (18)
  - Drug ineffective [Not Recovered/Not Resolved]
  - Injection site bruising [Recovered/Resolved]
  - Rash [Recovered/Resolved]
  - Alopecia [Not Recovered/Not Resolved]
  - Rheumatoid arthritis [Not Recovered/Not Resolved]
  - Malaise [Not Recovered/Not Resolved]
  - Swelling [Not Recovered/Not Resolved]
  - Nerve compression [Not Recovered/Not Resolved]
  - Motor dysfunction [Not Recovered/Not Resolved]
  - Pain [Not Recovered/Not Resolved]
  - Vasculitis [Not Recovered/Not Resolved]
  - Motor dysfunction [Not Recovered/Not Resolved]
  - Motor dysfunction [Not Recovered/Not Resolved]
  - Drug effect decreased [Not Recovered/Not Resolved]
  - Feeling hot [Unknown]
  - Unevaluable event [Not Recovered/Not Resolved]
  - Skin lesion [Not Recovered/Not Resolved]
  - C-reactive protein increased [Unknown]
